FAERS Safety Report 17315554 (Version 12)
Quarter: 2021Q2

REPORT INFORMATION
  Report Type: Report from Study
  Country: GB (occurrence: GB)
  Receive Date: 20200124
  Receipt Date: 20210414
  Transmission Date: 20210716
  Serious: Yes (Hospitalization)
  Sender: FDA-Public Use
  Company Number: GB-ROCHE-2524924

PATIENT
  Age: 66 Year
  Sex: Female
  Weight: 74 kg

DRUGS (25)
  1. IPATASERTIB. [Suspect]
     Active Substance: IPATASERTIB
     Indication: HER2 NEGATIVE BREAST CANCER
     Dosage: ON DAY 1?21 OF EACH 28 DAYS CYCLE?ON 12/JAN/2020, RECEIVED MOST RECENT DOSE (400 MG) PRIOR TO AE/SAE
     Route: 048
     Dates: start: 20191231
  2. AMITRIPTYLINE [Concomitant]
     Active Substance: AMITRIPTYLINE
     Indication: MIGRAINE
     Route: 048
     Dates: start: 20170222, end: 20200123
  3. LEVOTHYROXINE. [Concomitant]
     Active Substance: LEVOTHYROXINE
     Indication: HYPOTHYROIDISM
     Route: 048
     Dates: start: 20160906, end: 20210404
  4. PARACETAMOL [Concomitant]
     Active Substance: ACETAMINOPHEN
     Indication: ARTHRALGIA
     Route: 048
     Dates: start: 20191205
  5. LOPERAMIDE [Concomitant]
     Active Substance: LOPERAMIDE
     Route: 048
     Dates: start: 20200109
  6. RANITIDINE. [Concomitant]
     Active Substance: RANITIDINE
     Route: 042
     Dates: start: 20191231, end: 20200107
  7. LOPERAMIDE [Suspect]
     Active Substance: LOPERAMIDE
     Indication: HER2 NEGATIVE BREAST CANCER
     Dosage: ON 12/JAN/2020, RECEIVED MOST RECENT DOSE OF 2 MG PRIOR TO AE ONSET.
     Route: 048
     Dates: start: 20200104
  8. LEVOTHYROXINE. [Concomitant]
     Active Substance: LEVOTHYROXINE
     Route: 048
     Dates: start: 20210407
  9. ENOXAPARIN [Concomitant]
     Active Substance: ENOXAPARIN
     Route: 058
     Dates: start: 20200113, end: 20200117
  10. GRANISETRON [Concomitant]
     Active Substance: GRANISETRON
     Route: 042
     Dates: start: 20191231, end: 20200107
  11. CANDESARTAN. [Concomitant]
     Active Substance: CANDESARTAN
     Indication: HYPERTENSION
     Route: 048
     Dates: start: 20160906
  12. CETIRIZINE [Concomitant]
     Active Substance: CETIRIZINE HYDROCHLORIDE
     Route: 048
     Dates: start: 20200113, end: 20200117
  13. DEXAMETHASONE. [Concomitant]
     Active Substance: DEXAMETHASONE
     Route: 042
     Dates: start: 20191231, end: 20200107
  14. ATEZOLIZUMAB. [Suspect]
     Active Substance: ATEZOLIZUMAB
     Indication: HER2 NEGATIVE BREAST CANCER
     Dosage: ON DAYS 1 AND 15 OF EACH 28 DAYS CYCLE?ON 31/DEC/2019, AT 12:54 RECEIVED MOST RECENT DOSE PRIOR TO A
     Route: 041
     Dates: start: 20191231
  15. PACLITAXEL. [Suspect]
     Active Substance: PACLITAXEL
     Indication: HER2 NEGATIVE BREAST CANCER
     Dosage: ON DAYS 1, 8 AND 15 OF EACH 28 DAY CYCLE?ON 07/JAN/2020, AT 14:43 RECEIVED MOST RECENT DOSE OF 144 M
     Route: 042
     Dates: start: 20191231
  16. ATORVASTATIN [Concomitant]
     Active Substance: ATORVASTATIN
     Dosage: FOR PREVENTION OF CARDIO VASCULAR DISEASE
     Route: 048
     Dates: start: 20160906
  17. OMEPRAZOLE. [Concomitant]
     Active Substance: OMEPRAZOLE
     Route: 048
     Dates: start: 20200114
  18. CHLORPHENAMINE [Concomitant]
     Active Substance: CHLORPHENIRAMINE MALEATE
     Route: 042
     Dates: start: 20191231, end: 20200107
  19. INDIVINA [Concomitant]
     Active Substance: ESTRADIOL VALERATE\MEDROXYPROGESTERONE ACETATE
     Indication: HORMONE REPLACEMENT THERAPY
  20. IBUPROFEN. [Concomitant]
     Active Substance: IBUPROFEN
     Indication: MIGRAINE
  21. INDIVINA [Concomitant]
     Active Substance: ESTRADIOL VALERATE\MEDROXYPROGESTERONE ACETATE
     Indication: MENOPAUSE
     Route: 048
     Dates: start: 20170911
  22. RENNIE (UNITED KINGDOM) [Concomitant]
     Indication: DYSPEPSIA
     Route: 048
     Dates: start: 20200103, end: 20200104
  23. LOPERAMIDE [Concomitant]
     Active Substance: LOPERAMIDE
     Indication: DIARRHOEA
     Route: 048
     Dates: start: 20200104, end: 20200104
  24. OMEPRAZOLE. [Concomitant]
     Active Substance: OMEPRAZOLE
     Indication: DYSPEPSIA
     Route: 048
     Dates: start: 20200110, end: 20200113
  25. CYCLIZINE [Concomitant]
     Active Substance: CYCLIZINE
     Indication: NAUSEA
     Route: 042
     Dates: start: 20200113, end: 20200327

REACTIONS (2)
  - Pyrexia [Recovered/Resolved]
  - Gastroenteritis [Recovered/Resolved]

NARRATIVE: CASE EVENT DATE: 20200113
